FAERS Safety Report 7583089-0 (Version None)
Quarter: 2011Q2

REPORT INFORMATION
  Report Type: 
  Country: None (occurrence: None)
  Receive Date: 20110630
  Receipt Date: 20110620
  Transmission Date: 20111010
  Serious: Yes (Hospitalization)
  Sender: FDA-Public Use
  Company Number: GB-PURDUE-GBR-2011-0008421

PATIENT
  Age: 82 Year
  Sex: Female

DRUGS (5)
  1. CHLORPROMAZINE [Concomitant]
     Indication: SCHIZOPHRENIA
     Dosage: UNK
     Route: 048
  2. GLICLAZIDE [Concomitant]
     Indication: PRODUCT USED FOR UNKNOWN INDICATION
     Dosage: 160 MCG, BID
     Route: 048
  3. PERINDOPRIL ERBUMINE [Concomitant]
     Indication: HYPERTENSION
     Dosage: 8 MG, BID
     Route: 048
  4. BUTRANS 5MG TRANSDERMAL PATCH [Suspect]
     Indication: ANALGESIC THERAPY
     Dosage: 5 MCG, Q1H
     Route: 062
     Dates: end: 20110522
  5. METFORMIN HCL [Concomitant]
     Indication: PRODUCT USED FOR UNKNOWN INDICATION
     Dosage: 1 G, BID
     Route: 048

REACTIONS (1)
  - UNRESPONSIVE TO STIMULI [None]
